FAERS Safety Report 12847762 (Version 1)
Quarter: 2016Q4

REPORT INFORMATION
  Report Type: Spontaneous
  Country: US (occurrence: US)
  Receive Date: 20161014
  Receipt Date: 20161014
  Transmission Date: 20170207
  Serious: No
  Sender: FDA-Public Use
  Company Number: US-JNJFOC-20160909872

PATIENT
  Age: 6 Month
  Sex: Male

DRUGS (2)
  1. INFANTS TYLENOL [Suspect]
     Active Substance: ACETAMINOPHEN
     Indication: CROUP INFECTIOUS
     Dosage: 2.5 TO 3.75ML, EVERY 4 HOURS
     Route: 048
  2. INFANTS TYLENOL [Suspect]
     Active Substance: ACETAMINOPHEN
     Indication: CROUP INFECTIOUS
     Dosage: 2.5 TO 3.75ML, EVERY 4 HOURS
     Route: 048
     Dates: start: 20160908, end: 20160908

REACTIONS (6)
  - Product use issue [Unknown]
  - Off label use [Unknown]
  - Syringe issue [Unknown]
  - Product container seal issue [Unknown]
  - Product container issue [Unknown]
  - Drug administration error [Unknown]
